FAERS Safety Report 4789263-0 (Version None)
Quarter: 2005Q4

REPORT INFORMATION
  Report Type: 
  Country: None (occurrence: None)
  Receive Date: 20051004
  Receipt Date: 20050921
  Transmission Date: 20060501
  Serious: Yes (Other)
  Sender: FDA-Public Use
  Company Number: 216540

PATIENT
  Age: 45 Year
  Sex: Male

DRUGS (3)
  1. RAPTIVA [Suspect]
     Indication: PSORIASIS
     Dosage: 0.9 ML, 1/WEEK, SUBCUTANEOUS
     Route: 058
     Dates: end: 20050729
  2. NEXIUM [Concomitant]
  3. ULTRAVATE (HALOBETASOL PROPIONATE) [Concomitant]

REACTIONS (8)
  - ANAPHYLACTIC REACTION [None]
  - CONDITION AGGRAVATED [None]
  - FLUSHING [None]
  - LOCAL SWELLING [None]
  - PHARYNGEAL OEDEMA [None]
  - PSORIASIS [None]
  - SENSATION OF FOREIGN BODY [None]
  - URTICARIA [None]
